FAERS Safety Report 10333130 (Version 1)
Quarter: 2014Q3

REPORT INFORMATION
  Report Type: Spontaneous
  Country: US (occurrence: US)
  Receive Date: 20140722
  Receipt Date: 20140722
  Transmission Date: 20150326
  Serious: No
  Sender: FDA-Public Use
  Company Number: US-SA-2014SA012736

PATIENT
  Age: 60 Year
  Sex: Female

DRUGS (3)
  1. AMBIEN CR [Suspect]
     Active Substance: ZOLPIDEM TARTRATE
     Indication: SLEEP DISORDER
     Route: 048
  2. LORAZEPAM. [Concomitant]
     Active Substance: LORAZEPAM
     Indication: MENOPAUSE
  3. LUNESTA [Concomitant]
     Active Substance: ESZOPICLONE

REACTIONS (2)
  - Drug ineffective [Unknown]
  - Off label use [Unknown]
